FAERS Safety Report 12285112 (Version 2)
Quarter: 2021Q3

REPORT INFORMATION
  Report Type: Spontaneous
  Country: GB (occurrence: GB)
  Receive Date: 20160420
  Receipt Date: 20210823
  Transmission Date: 20211014
  Serious: Yes (Hospitalization, Other)
  Sender: FDA-Public Use
  Company Number: GB-TEVA-651701ACC

PATIENT
  Age: 69 Year
  Sex: Female

DRUGS (7)
  1. SIMVASTATIN. [Concomitant]
     Active Substance: SIMVASTATIN
     Dosage: 20 MILLIGRAM DAILY; 20 MG, ?AT NIGHT
  2. DOXAZOSIN [Concomitant]
     Active Substance: DOXAZOSIN MESYLATE
     Dosage: 4 MILLIGRAM DAILY;  MORNING
  3. OMEPRAZOLE. [Concomitant]
     Active Substance: OMEPRAZOLE
  4. QUETIAPINE. [Concomitant]
     Active Substance: QUETIAPINE
     Dosage: 450 MILLIGRAM DAILY; 450 MG,  AT NIGHT
  5. RAMIPRIL. [Suspect]
     Active Substance: RAMIPRIL
     Indication: PRODUCT USED FOR UNKNOWN INDICATION
     Dosage: 1.25 MILLIGRAM DAILY;
     Route: 048
     Dates: start: 20151218, end: 20160129
  6. INDAPAMIDE. [Concomitant]
     Active Substance: INDAPAMIDE
     Dosage: 1.5 MILLIGRAM DAILY; 1.5 MG, MORNING
  7. PRIADEL [Suspect]
     Active Substance: LITHIUM
     Indication: PRODUCT USED FOR UNKNOWN INDICATION
     Dosage: 600 MILLIGRAM DAILY;
     Route: 048
     Dates: end: 20160129

REACTIONS (8)
  - Acute kidney injury [Recovered/Resolved]
  - General physical health deterioration [Unknown]
  - Product monitoring error [Unknown]
  - Confusional state [Unknown]
  - Pyrexia [Unknown]
  - Dysuria [Unknown]
  - Toxicity to various agents [Recovered/Resolved]
  - Urinary tract infection [Unknown]

NARRATIVE: CASE EVENT DATE: 20160129
